FAERS Safety Report 5536670-4 (Version None)
Quarter: 2007Q4

REPORT INFORMATION
  Report Type: 
  Country: None (occurrence: None)
  Receive Date: 20071206
  Receipt Date: 20070705
  Transmission Date: 20080405
  Serious: Yes (Hospitalization)
  Sender: FDA-Public Use
  Company Number: US-AMGEN-KDL230421

PATIENT
  Sex: Female
  Weight: 64.5 kg

DRUGS (13)
  1. ENBREL [Suspect]
     Indication: PSORIATIC ARTHROPATHY
     Route: 058
     Dates: start: 20070312, end: 20070414
  2. CELEBREX [Concomitant]
  3. SKELAXIN [Concomitant]
  4. PRILOSEC [Concomitant]
  5. ESTRADIOL [Concomitant]
  6. DIOVAN [Concomitant]
  7. CELEXA [Concomitant]
  8. COLACE [Concomitant]
  9. AMBIEN [Concomitant]
  10. DESYREL [Concomitant]
  11. POTASSIUM CHLORIDE [Concomitant]
  12. ECOTRIN [Concomitant]
  13. TUMS [Concomitant]

REACTIONS (2)
  - CELLULITIS [None]
  - HERPES SIMPLEX [None]
